FAERS Safety Report 25802537 (Version 4)
Quarter: 2025Q4

REPORT INFORMATION
  Report Type: Spontaneous
  Country: GB (occurrence: GB)
  Receive Date: 20250915
  Receipt Date: 20251022
  Transmission Date: 20260117
  Serious: Yes (Hospitalization, Other)
  Sender: MYLAN
  Company Number: GB-OPELLA-2025OHG026584

PATIENT
  Sex: Female

DRUGS (72)
  1. PREGABALIN [Suspect]
     Active Substance: PREGABALIN
     Indication: Hypermobility syndrome
     Dosage: UNK
  2. PREGABALIN [Suspect]
     Active Substance: PREGABALIN
     Indication: Fibromyalgia
  3. PREGABALIN [Suspect]
     Active Substance: PREGABALIN
     Indication: Intervertebral disc degeneration
  4. PREGABALIN [Suspect]
     Active Substance: PREGABALIN
     Indication: Neuropathy peripheral
  5. PREGABALIN [Suspect]
     Active Substance: PREGABALIN
     Indication: Hemiplegic migraine
  6. PREGABALIN [Suspect]
     Active Substance: PREGABALIN
     Indication: Endometriosis
  7. PREGABALIN [Suspect]
     Active Substance: PREGABALIN
     Indication: Arthralgia
  8. PREGABALIN [Suspect]
     Active Substance: PREGABALIN
     Indication: Spinal osteoarthritis
  9. PREGABALIN [Suspect]
     Active Substance: PREGABALIN
     Indication: Hyperparathyroidism
  10. PREGABALIN [Suspect]
     Active Substance: PREGABALIN
     Indication: Hernia
  11. NAPROXEN [Suspect]
     Active Substance: NAPROXEN
     Indication: Hypermobility syndrome
     Dosage: UNK
  12. NAPROXEN [Suspect]
     Active Substance: NAPROXEN
     Indication: Fibromyalgia
  13. NAPROXEN [Suspect]
     Active Substance: NAPROXEN
     Indication: Intervertebral disc degeneration
  14. NAPROXEN [Suspect]
     Active Substance: NAPROXEN
     Indication: Neuropathy peripheral
  15. NAPROXEN [Suspect]
     Active Substance: NAPROXEN
     Indication: Hemiplegic migraine
  16. NAPROXEN [Suspect]
     Active Substance: NAPROXEN
     Indication: Endometriosis
  17. NAPROXEN [Suspect]
     Active Substance: NAPROXEN
     Indication: Arthralgia
  18. NAPROXEN [Suspect]
     Active Substance: NAPROXEN
     Indication: Spinal osteoarthritis
  19. NAPROXEN [Suspect]
     Active Substance: NAPROXEN
     Indication: Hyperparathyroidism
  20. NAPROXEN [Suspect]
     Active Substance: NAPROXEN
     Indication: Hernia
  21. DULOXETINE [Suspect]
     Active Substance: DULOXETINE
     Indication: Hypermobility syndrome
     Dosage: UNK
  22. DULOXETINE [Suspect]
     Active Substance: DULOXETINE
     Indication: Fibromyalgia
  23. DULOXETINE [Suspect]
     Active Substance: DULOXETINE
     Indication: Intervertebral disc degeneration
  24. DULOXETINE [Suspect]
     Active Substance: DULOXETINE
     Indication: Neuropathy peripheral
  25. DULOXETINE [Suspect]
     Active Substance: DULOXETINE
     Indication: Hemiplegic migraine
  26. DULOXETINE [Suspect]
     Active Substance: DULOXETINE
     Indication: Endometriosis
  27. DULOXETINE [Suspect]
     Active Substance: DULOXETINE
     Indication: Arthralgia
  28. DULOXETINE [Suspect]
     Active Substance: DULOXETINE
     Indication: Spinal osteoarthritis
  29. DULOXETINE [Suspect]
     Active Substance: DULOXETINE
     Indication: Hyperparathyroidism
  30. DULOXETINE [Suspect]
     Active Substance: DULOXETINE
     Indication: Hernia
  31. TRAMADOL [Suspect]
     Active Substance: TRAMADOL
     Indication: Hypermobility syndrome
     Dosage: UNK (CO-CODAMOL)
  32. TRAMADOL [Suspect]
     Active Substance: TRAMADOL
     Indication: Fibromyalgia
  33. TRAMADOL [Suspect]
     Active Substance: TRAMADOL
     Indication: Intervertebral disc degeneration
  34. TRAMADOL [Suspect]
     Active Substance: TRAMADOL
     Indication: Neuropathy peripheral
  35. TRAMADOL [Suspect]
     Active Substance: TRAMADOL
     Indication: Hemiplegic migraine
  36. TRAMADOL [Suspect]
     Active Substance: TRAMADOL
     Indication: Endometriosis
  37. TRAMADOL [Suspect]
     Active Substance: TRAMADOL
     Indication: Arthralgia
  38. TRAMADOL [Suspect]
     Active Substance: TRAMADOL
     Indication: Spinal osteoarthritis
  39. TRAMADOL [Suspect]
     Active Substance: TRAMADOL
     Indication: Hyperparathyroidism
  40. TRAMADOL [Suspect]
     Active Substance: TRAMADOL
     Indication: Hernia
  41. BUTYLSCOPOLAMINE BROMIDE [Suspect]
     Active Substance: BUTYLSCOPOLAMINE BROMIDE
     Indication: Irritable bowel syndrome
     Dosage: UNK (MAROL PROLONGED RELEASE)
  42. TRAMADOL HYDROCHLORIDE [Suspect]
     Active Substance: TRAMADOL HYDROCHLORIDE
     Indication: Hypermobility syndrome
     Dosage: UNK (PROLONG RELEASE)
  43. TRAMADOL HYDROCHLORIDE [Suspect]
     Active Substance: TRAMADOL HYDROCHLORIDE
     Indication: Fibromyalgia
  44. TRAMADOL HYDROCHLORIDE [Suspect]
     Active Substance: TRAMADOL HYDROCHLORIDE
     Indication: Intervertebral disc degeneration
  45. TRAMADOL HYDROCHLORIDE [Suspect]
     Active Substance: TRAMADOL HYDROCHLORIDE
     Indication: Neuropathy peripheral
  46. TRAMADOL HYDROCHLORIDE [Suspect]
     Active Substance: TRAMADOL HYDROCHLORIDE
     Indication: Hemiplegic migraine
  47. TRAMADOL HYDROCHLORIDE [Suspect]
     Active Substance: TRAMADOL HYDROCHLORIDE
     Indication: Endometriosis
  48. TRAMADOL HYDROCHLORIDE [Suspect]
     Active Substance: TRAMADOL HYDROCHLORIDE
     Indication: Arthralgia
  49. TRAMADOL HYDROCHLORIDE [Suspect]
     Active Substance: TRAMADOL HYDROCHLORIDE
     Indication: Spinal osteoarthritis
  50. TRAMADOL HYDROCHLORIDE [Suspect]
     Active Substance: TRAMADOL HYDROCHLORIDE
     Indication: Hyperparathyroidism
  51. TRAMADOL HYDROCHLORIDE [Suspect]
     Active Substance: TRAMADOL HYDROCHLORIDE
     Indication: Hernia
  52. ASPIRIN [Suspect]
     Active Substance: ASPIRIN
     Indication: Hypermobility syndrome
     Dosage: UNK
  53. ASPIRIN [Suspect]
     Active Substance: ASPIRIN
     Indication: Fibromyalgia
  54. ASPIRIN [Suspect]
     Active Substance: ASPIRIN
     Indication: Intervertebral disc degeneration
  55. ASPIRIN [Suspect]
     Active Substance: ASPIRIN
     Indication: Neuropathy peripheral
  56. ASPIRIN [Suspect]
     Active Substance: ASPIRIN
     Indication: Hemiplegic migraine
  57. ASPIRIN [Suspect]
     Active Substance: ASPIRIN
     Indication: Endometriosis
  58. ASPIRIN [Suspect]
     Active Substance: ASPIRIN
     Indication: Arthralgia
  59. ASPIRIN [Suspect]
     Active Substance: ASPIRIN
     Indication: Spinal osteoarthritis
  60. ASPIRIN [Suspect]
     Active Substance: ASPIRIN
     Indication: Hyperparathyroidism
  61. ASPIRIN [Suspect]
     Active Substance: ASPIRIN
     Indication: Hernia
  62. ACETAMINOPHEN\CODEINE PHOSPHATE [Suspect]
     Active Substance: ACETAMINOPHEN\CODEINE PHOSPHATE
     Indication: Hypermobility syndrome
     Dosage: UNK
  63. ACETAMINOPHEN\CODEINE PHOSPHATE [Suspect]
     Active Substance: ACETAMINOPHEN\CODEINE PHOSPHATE
     Indication: Fibromyalgia
  64. ACETAMINOPHEN\CODEINE PHOSPHATE [Suspect]
     Active Substance: ACETAMINOPHEN\CODEINE PHOSPHATE
     Indication: Intervertebral disc degeneration
  65. ACETAMINOPHEN\CODEINE PHOSPHATE [Suspect]
     Active Substance: ACETAMINOPHEN\CODEINE PHOSPHATE
     Indication: Neuropathy peripheral
  66. ACETAMINOPHEN\CODEINE PHOSPHATE [Suspect]
     Active Substance: ACETAMINOPHEN\CODEINE PHOSPHATE
     Indication: Hemiplegic migraine
  67. ACETAMINOPHEN\CODEINE PHOSPHATE [Suspect]
     Active Substance: ACETAMINOPHEN\CODEINE PHOSPHATE
     Indication: Endometriosis
  68. ACETAMINOPHEN\CODEINE PHOSPHATE [Suspect]
     Active Substance: ACETAMINOPHEN\CODEINE PHOSPHATE
     Indication: Arthralgia
  69. ACETAMINOPHEN\CODEINE PHOSPHATE [Suspect]
     Active Substance: ACETAMINOPHEN\CODEINE PHOSPHATE
     Indication: Spinal osteoarthritis
  70. ACETAMINOPHEN\CODEINE PHOSPHATE [Suspect]
     Active Substance: ACETAMINOPHEN\CODEINE PHOSPHATE
     Indication: Hyperparathyroidism
  71. ACETAMINOPHEN\CODEINE PHOSPHATE [Suspect]
     Active Substance: ACETAMINOPHEN\CODEINE PHOSPHATE
     Indication: Hernia
  72. SENNA [Suspect]
     Active Substance: SENNOSIDES
     Indication: Irritable bowel syndrome
     Dosage: UNK

REACTIONS (9)
  - Pneumonia [Unknown]
  - Medical induction of coma [Unknown]
  - Traumatic lung injury [Unknown]
  - Asthma [Unknown]
  - Post-traumatic stress disorder [Unknown]
  - Constipation [Unknown]
  - Diarrhoea [Unknown]
  - Rash [Unknown]
  - Irritable bowel syndrome [Unknown]
